FAERS Safety Report 9032021 (Version 1)
Quarter: 2013Q1

REPORT INFORMATION
  Report Type: Spontaneous
  Country: US (occurrence: US)
  Receive Date: 20130125
  Receipt Date: 20130125
  Transmission Date: 20140127
  Serious: Yes (Other)
  Sender: FDA-Public Use
  Company Number: US-PFIZER INC-2013030412

PATIENT
  Sex: Male

DRUGS (1)
  1. CHANTIX [Suspect]
     Dosage: UNK
     Dates: start: 20080804

REACTIONS (5)
  - Cardiac disorder [Unknown]
  - Cardiac ventricular disorder [Unknown]
  - Migraine [Unknown]
  - Heart rate irregular [Unknown]
  - Dizziness [Unknown]
